FAERS Safety Report 5186406-4 (Version None)
Quarter: 2006Q4

REPORT INFORMATION
  Report Type: 
  Country: None (occurrence: None)
  Receive Date: 20061213
  Receipt Date: 20061130
  Transmission Date: 20070319
  Serious: Yes (Other)
  Sender: FDA-Public Use
  Company Number: 2006138199

PATIENT
  Age: 64 Year
  Sex: Female
  Weight: 99 kg

DRUGS (11)
  1. LYRICA [Suspect]
     Dosage: 150 MG (75 MG, 1 IN 1 D)
  2. COAPROVEL (HYDROCHLOROTHIAZIDE, IRBESARTAN) [Suspect]
     Indication: HYPERTENSION
     Dosage: 300 MG, (300 MG, 1 IN 1 D), ORAL
     Route: 048
  3. BETAXOLOL [Concomitant]
  4. FENOFIBRATE [Concomitant]
  5. TRIMETAZIDINE (TRIMETAZIDINE) [Concomitant]
  6. REPAGLINIDE [Concomitant]
  7. PIOGLITAZONE HCL [Concomitant]
  8. FUROSEMIDE [Concomitant]
  9. ISRADIPINE [Concomitant]
  10. VENLAFAXINE HCL [Concomitant]
  11. AMITRIPTYLINE HCL [Concomitant]

REACTIONS (3)
  - BLOOD CREATININE INCREASED [None]
  - BLOOD UREA INCREASED [None]
  - DRUG INTERACTION [None]
